FAERS Safety Report 17798935 (Version 2)
Quarter: 2020Q3

REPORT INFORMATION
  Report Type: Spontaneous
  Country: AR (occurrence: AR)
  Receive Date: 20200518
  Receipt Date: 20200730
  Transmission Date: 20201102
  Serious: Yes (Other)
  Sender: FDA-Public Use
  Company Number: AR-PFIZER INC-2020193462

PATIENT
  Age: 57 Year
  Sex: Female

DRUGS (3)
  1. REDOXON [ASCORBIC ACID] [Concomitant]
     Active Substance: ASCORBIC ACID
     Dosage: UNK
  2. ARTRAIT [METHOTREXATE SODIUM] [Concomitant]
     Dosage: UNK
  3. XELJANZ [Suspect]
     Active Substance: TOFACITINIB CITRATE
     Indication: RHEUMATOID ARTHRITIS
     Dosage: 5 MG, 2X/DAY
     Dates: start: 20190801

REACTIONS (8)
  - Injury [Unknown]
  - American trypanosomiasis [Unknown]
  - Asthenia [Unknown]
  - Hypertension [Unknown]
  - Cardiac disorder [Unknown]
  - Dizziness [Unknown]
  - Fall [Unknown]
  - Gait disturbance [Unknown]

NARRATIVE: CASE EVENT DATE: 202007
